FAERS Safety Report 9609303 (Version 2)
Quarter: 2013Q4

REPORT INFORMATION
  Report Type: Spontaneous
  Country: US (occurrence: US)
  Receive Date: 20131009
  Receipt Date: 20131101
  Transmission Date: 20140711
  Serious: Yes (Death, Other)
  Sender: FDA-Public Use
  Company Number: US-GILEAD-2013-0085015

PATIENT
  Sex: Female

DRUGS (4)
  1. LETAIRIS [Suspect]
     Indication: PULMONARY HYPERTENSION
     Dosage: 10 MG, UNK
     Dates: start: 20120124
  2. LETAIRIS [Suspect]
     Indication: HYPERTENSIVE HEART DISEASE
  3. LETAIRIS [Suspect]
     Indication: DIASTOLIC DYSFUNCTION
  4. TRACLEER                           /01587701/ [Concomitant]

REACTIONS (1)
  - Renal failure [Fatal]
